FAERS Safety Report 20750207 (Version 2)
Quarter: 2022Q2

REPORT INFORMATION
  Report Type: Report from Study
  Country: US (occurrence: US)
  Receive Date: 20220426
  Receipt Date: 20220427
  Transmission Date: 20220721
  Serious: Yes (Other)
  Sender: FDA-Public Use
  Company Number: US-BRISTOL-MYERS SQUIBB COMPANY-2022-024388

PATIENT
  Age: 75 Year
  Sex: Female

DRUGS (53)
  1. POMALIDOMIDE [Suspect]
     Active Substance: POMALIDOMIDE
     Indication: Plasma cell myeloma
     Dosage: WITH THE MOST RECENT DOSE/LAST DOSE ADMINISTERED ON 05-APR-2022
     Route: 048
     Dates: start: 20211123, end: 20220405
  2. COENZYME Q10 [Concomitant]
     Active Substance: DIETARY SUPPLEMENT\UBIDECARENONE
     Indication: Routine health maintenance
     Route: 048
     Dates: start: 20070701
  3. MAGNESIUM [MAGNESIUM HYDROXIDE] [Concomitant]
     Indication: Prophylaxis
     Route: 048
     Dates: start: 20080101
  4. PANTOPRAZOLE [Concomitant]
     Active Substance: PANTOPRAZOLE
     Indication: Gastrooesophageal reflux disease
     Route: 048
     Dates: start: 20080101
  5. ETODOLAC [Concomitant]
     Active Substance: ETODOLAC
     Indication: Arthralgia
     Route: 048
     Dates: start: 20081101
  6. PROBIOTICS NOS [Concomitant]
     Active Substance: PROBIOTICS NOS
     Indication: Prophylaxis
     Route: 048
     Dates: start: 20100101
  7. CALCIUM CARBONATE\CHOLECALCIFEROL [Concomitant]
     Active Substance: CALCIUM CARBONATE\CHOLECALCIFEROL
     Indication: Prophylaxis
     Route: 048
     Dates: start: 20100101
  8. RANITIDINE [Concomitant]
     Active Substance: RANITIDINE
     Indication: Gastrooesophageal reflux disease
     Route: 048
     Dates: start: 20110101
  9. VITAMINS [Concomitant]
     Active Substance: VITAMINS
     Indication: Routine health maintenance
     Route: 048
     Dates: start: 20120101
  10. GABAPENTIN [Concomitant]
     Active Substance: GABAPENTIN
     Indication: Neuropathy peripheral
     Route: 048
     Dates: start: 20130501
  11. GABAPENTIN [Concomitant]
     Active Substance: GABAPENTIN
     Indication: Insomnia
     Route: 048
     Dates: start: 20211027
  12. MIRTAZAPINE [Concomitant]
     Active Substance: MIRTAZAPINE
     Indication: Depression
     Route: 048
     Dates: start: 20130701
  13. MIRTAZAPINE [Concomitant]
     Active Substance: MIRTAZAPINE
     Route: 048
     Dates: start: 20211027
  14. OXYGEN [Concomitant]
     Active Substance: OXYGEN
     Indication: Hypoxia
     Route: 045
     Dates: start: 20150101
  15. PAROXETINE [Concomitant]
     Active Substance: PAROXETINE
     Indication: Depression
     Route: 048
     Dates: start: 20170404
  16. ASPIRIN [Concomitant]
     Active Substance: ASPIRIN
     Indication: Migraine
     Route: 048
     Dates: start: 20170404
  17. LOPERAMIDE [Concomitant]
     Active Substance: LOPERAMIDE
     Indication: Diarrhoea
     Route: 048
     Dates: start: 20170830
  18. ACETAMINOPHEN [Concomitant]
     Active Substance: ACETAMINOPHEN
     Indication: Antipyresis
     Route: 048
     Dates: start: 20171001
  19. GUAIFENESIN [Concomitant]
     Active Substance: GUAIFENESIN
     Indication: Chronic sinusitis
     Dosage: 30/600
     Route: 048
     Dates: start: 20180401
  20. NASALCROM [Concomitant]
     Active Substance: CROMOLYN SODIUM
     Indication: Rhinitis allergic
     Route: 045
     Dates: start: 20180508
  21. ALBUTEROL SULFATE [Concomitant]
     Active Substance: ALBUTEROL SULFATE
     Indication: Asthma
     Route: 055
     Dates: start: 20180620
  22. FLOVENT HFA [Concomitant]
     Active Substance: FLUTICASONE PROPIONATE
     Indication: Asthma
     Route: 055
     Dates: start: 20180806
  23. PAPAYA ENZYMES [Concomitant]
     Indication: Routine health maintenance
     Route: 048
     Dates: start: 20180822
  24. HERBALS\PLANTAGO OVATA LEAF [Concomitant]
     Active Substance: HERBALS\PLANTAGO OVATA LEAF
     Indication: Constipation
     Route: 048
     Dates: start: 20180822
  25. DOCUSATE SODIUM [Concomitant]
     Active Substance: DOCUSATE SODIUM
     Indication: Constipation
     Route: 048
     Dates: start: 20200102
  26. VALIUM [Concomitant]
     Active Substance: DIAZEPAM
     Indication: Anxiety
     Route: 048
     Dates: start: 20200303
  27. VALIUM [Concomitant]
     Active Substance: DIAZEPAM
     Indication: Insomnia
  28. ZOLEDRONIC ACID [Concomitant]
     Active Substance: ZOLEDRONIC ACID
     Indication: Routine health maintenance
     Route: 042
     Dates: start: 20200303
  29. DICLOFENAC [Concomitant]
     Active Substance: DICLOFENAC
     Indication: Arthralgia
     Route: 061
     Dates: start: 20200303
  30. LORATADINE [Concomitant]
     Active Substance: LORATADINE
     Indication: Rhinitis allergic
     Route: 048
     Dates: start: 20200716
  31. BIMATOPROST [Concomitant]
     Active Substance: BIMATOPROST
     Indication: Routine health maintenance
     Dates: start: 20210118
  32. NASACORT [Concomitant]
     Active Substance: TRIAMCINOLONE ACETONIDE
     Indication: Rhinitis allergic
     Route: 055
     Dates: start: 20210304
  33. LISINOPRIL [Concomitant]
     Active Substance: LISINOPRIL
     Indication: Diastolic dysfunction
     Route: 048
     Dates: start: 20210518
  34. METOPROLOL TARTRATE [Concomitant]
     Active Substance: METOPROLOL TARTRATE
     Indication: Diastolic dysfunction
     Route: 048
     Dates: start: 20210721
  35. FIORINAL [Concomitant]
     Active Substance: ASPIRIN\BUTALBITAL\CAFFEINE
     Indication: Migraine
     Dosage: 100/650/80
     Route: 048
     Dates: start: 20211006
  36. CHOLECALCIFEROL [Concomitant]
     Active Substance: CHOLECALCIFEROL
     Indication: Routine health maintenance
     Route: 048
     Dates: start: 20211027
  37. ACYCLOVIR [Concomitant]
     Active Substance: ACYCLOVIR
     Indication: Antiviral prophylaxis
     Route: 048
     Dates: start: 20211027
  38. CARBOXYMETHYLCELLULOSE SODIUM [Concomitant]
     Active Substance: CARBOXYMETHYLCELLULOSE SODIUM
     Indication: Dry eye
     Dosage: 1-2
     Dates: start: 20211027
  39. DIAZEPAM [Concomitant]
     Active Substance: DIAZEPAM
     Indication: Muscle spasms
     Route: 048
     Dates: start: 20211027
  40. CALCIUM GLUCONATE [Concomitant]
     Active Substance: CALCIUM GLUCONATE
     Indication: Hypocalcaemia
     Route: 042
     Dates: start: 20211028
  41. MAGNESIUM SULFATE [Concomitant]
     Active Substance: MAGNESIUM SULFATE
     Indication: Prophylaxis
     Route: 042
     Dates: start: 20211028
  42. OXYCODONE [Concomitant]
     Active Substance: OXYCODONE
     Indication: Pain in jaw
     Route: 048
     Dates: start: 20211102
  43. OXYCODONE [Concomitant]
     Active Substance: OXYCODONE
     Route: 048
     Dates: start: 20211102
  44. PROCHLORPERAZINE [Concomitant]
     Active Substance: PROCHLORPERAZINE
     Indication: Nausea
     Route: 048
     Dates: start: 20211102
  45. LIDOCAINE [Concomitant]
     Active Substance: LIDOCAINE
     Indication: Pain
     Route: 062
     Dates: start: 20211102
  46. BIOTENE DRY MOUTH [SODIUM FLUOROPHOSPHATE] [Concomitant]
     Indication: Dry mouth
     Route: 048
     Dates: start: 20211108
  47. METOPROLOL [Concomitant]
     Active Substance: METOPROLOL
     Indication: Diastolic dysfunction
     Route: 048
     Dates: start: 20211109
  48. DEXAMETHASONE [Concomitant]
     Active Substance: DEXAMETHASONE
     Indication: Premedication
     Route: 048
     Dates: start: 20211123
  49. RAMIPRIL [Concomitant]
     Active Substance: RAMIPRIL
     Indication: Diastolic dysfunction
     Route: 048
     Dates: start: 20211214
  50. RAMIPRIL [Concomitant]
     Active Substance: RAMIPRIL
     Route: 048
     Dates: start: 20220104
  51. EVOXAC [Concomitant]
     Active Substance: CEVIMELINE HYDROCHLORIDE
     Indication: Dry mouth
     Route: 048
     Dates: start: 20211214
  52. IMODIUM [Concomitant]
     Active Substance: LOPERAMIDE HYDROCHLORIDE
     Indication: Diarrhoea
     Route: 048
     Dates: start: 20220317
  53. AUGMENTIN [Concomitant]
     Active Substance: AMOXICILLIN\CLAVULANATE POTASSIUM
     Indication: Pneumonia
     Dosage: 875/125
     Route: 048
     Dates: start: 20220317

REACTIONS (1)
  - Pneumonia fungal [Not Recovered/Not Resolved]

NARRATIVE: CASE EVENT DATE: 20220405
